FAERS Safety Report 5564286-2 (Version None)
Quarter: 2007Q4

REPORT INFORMATION
  Report Type: 
  Country: None (occurrence: None)
  Receive Date: 20071214
  Receipt Date: 20071214
  Transmission Date: 20080405
  Serious: Yes (Hospitalization)
  Sender: FDA-Public Use
  Company Number: None

PATIENT
  Age: 78 Year
  Sex: Female

DRUGS (3)
  1. WARFARIN SODIUM [Suspect]
     Indication: HIP FRACTURE
     Dosage: 1MG DAILY PO
     Route: 048
  2. WARFARIN SODIUM [Suspect]
     Indication: OPEN REDUCTION OF FRACTURE
     Dosage: 1MG DAILY PO
     Route: 048
  3. LOVENOX [Suspect]
     Dosage: 30MG BID SQ
     Route: 058

REACTIONS (6)
  - ANAEMIA [None]
  - HYPERHIDROSIS [None]
  - HYPOTENSION [None]
  - PAIN IN EXTREMITY [None]
  - PALLOR [None]
  - RETROPERITONEAL HAEMATOMA [None]
